FAERS Safety Report 7183866-4 (Version None)
Quarter: 2010Q4

REPORT INFORMATION
  Report Type: 
  Country: None (occurrence: None)
  Receive Date: 20101222
  Receipt Date: 20101214
  Transmission Date: 20110411
  Serious: Yes (Hospitalization)
  Sender: FDA-Public Use
  Company Number: SE-PURDUE-GBR-2010-0007514

PATIENT
  Sex: Male

DRUGS (16)
  1. OXYCONTIN [Suspect]
     Indication: PRODUCT USED FOR UNKNOWN INDICATION
     Dosage: 15 MG, DAILY
     Route: 048
     Dates: start: 20100923, end: 20101101
  2. B-KOMBIN                           /00228301/ [Concomitant]
  3. ASASANTIN [Concomitant]
  4. OMEPRAZOLE [Concomitant]
  5. PRIMPERAN TAB [Concomitant]
  6. SIMVASTATIN [Concomitant]
  7. GABAPENTIN [Concomitant]
  8. FENTANYL                           /00174602/ [Concomitant]
     Dosage: 12 MCG, Q1H
  9. BENSYLPENICILLIN MEDA [Concomitant]
  10. KAVEPENIN [Concomitant]
  11. LAXOBERAL [Concomitant]
  12. KALEORID [Concomitant]
  13. PEVARYL                            /00418501/ [Concomitant]
  14. TENORMIN [Concomitant]
  15. IMIPENEM AND CILASTATIN [Concomitant]
  16. ZOPIKLON NM [Concomitant]

REACTIONS (2)
  - CONFUSIONAL STATE [None]
  - PNEUMOCOCCAL SEPSIS [None]
